FAERS Safety Report 13073591 (Version 2)
Quarter: 2017Q1

REPORT INFORMATION
  Report Type: Report from Study
  Country: US (occurrence: US)
  Receive Date: 20161229
  Receipt Date: 20170223
  Transmission Date: 20170428
  Serious: Yes (Death, Disabling, Other)
  Sender: FDA-Public Use
  Company Number: US-REGENERON PHARMACEUTICALS, INC.-2016-25684

PATIENT

DRUGS (1)
  1. EYLEA [Suspect]
     Active Substance: AFLIBERCEPT
     Indication: PRODUCT USED FOR UNKNOWN INDICATION
     Dosage: 2 MG, Q 8 WEEKS
     Route: 031
     Dates: start: 20130219

REACTIONS (1)
  - Cervical vertebral fracture [Fatal]
